FAERS Safety Report 17986928 (Version 1)
Quarter: 2020Q3

REPORT INFORMATION
  Report Type: Report from Study
  Country: BE (occurrence: BE)
  Receive Date: 20200707
  Receipt Date: 20200707
  Transmission Date: 20201103
  Serious: Yes (Other)
  Sender: FDA-Public Use
  Company Number: BE-ROCHE-2635614

PATIENT
  Age: 44 Year
  Sex: Male
  Weight: 67 kg

DRUGS (30)
  1. OMEPRAZOLE. [Concomitant]
     Active Substance: OMEPRAZOLE
  2. DAFALGAN CODEINE [Concomitant]
     Active Substance: ACETAMINOPHEN\CODEINE PHOSPHATE
  3. RIVOTRIL [Concomitant]
     Active Substance: CLONAZEPAM
  4. DESLORATADINE;PSEUDOEPHEDRINE [Concomitant]
  5. OCRELIZUMAB. [Suspect]
     Active Substance: OCRELIZUMAB
     Indication: PRIMARY PROGRESSIVE MULTIPLE SCLEROSIS
     Dosage: 300 MG/ 250 ML
     Route: 042
     Dates: start: 20190902, end: 20190902
  6. NEURONTIN [Concomitant]
     Active Substance: GABAPENTIN
  7. DOXYCYCLINE. [Concomitant]
     Active Substance: DOXYCYCLINE
  8. OXYCONTIN [Concomitant]
     Active Substance: OXYCODONE HYDROCHLORIDE
  9. DEPO?MEDROL [Concomitant]
     Active Substance: METHYLPREDNISOLONE ACETATE
  10. LEVOCETIRIZINE [Concomitant]
     Active Substance: LEVOCETIRIZINE
  11. PARACETAMOL [Concomitant]
     Active Substance: ACETAMINOPHEN
  12. MIDAZOLAM. [Concomitant]
     Active Substance: MIDAZOLAM
  13. CLARITHROMYCINE [Concomitant]
     Active Substance: CLARITHROMYCIN
  14. OCRELIZUMAB. [Suspect]
     Active Substance: OCRELIZUMAB
     Indication: RELAPSING MULTIPLE SCLEROSIS
     Dosage: 300 MG/ 250 ML
     Route: 042
     Dates: start: 20190917, end: 20190917
  15. TEMESTA EXPIDET [Concomitant]
     Active Substance: LORAZEPAM
  16. OXYCODONE [Concomitant]
     Active Substance: OXYCODONE
  17. KETAMINE [Concomitant]
     Active Substance: KETAMINE
  18. CHIROCAINE [LEVOBUPIVACAINE] [Concomitant]
  19. OCRELIZUMAB. [Suspect]
     Active Substance: OCRELIZUMAB
     Dosage: 600 MG/ 500 ML
     Route: 042
     Dates: start: 20200612, end: 20200612
  20. SATIVEX [Concomitant]
     Active Substance: NABIXIMOLS
  21. BACLOFEN. [Concomitant]
     Active Substance: BACLOFEN
  22. NESTROLAN [Concomitant]
  23. MAGNESIUM [Concomitant]
     Active Substance: MAGNESIUM
  24. XYLOCAINE [Concomitant]
     Active Substance: LIDOCAINE HYDROCHLORIDE
  25. SIMVASTATINE EG [Concomitant]
     Active Substance: SIMVASTATIN
  26. OXYNORM [Concomitant]
     Active Substance: OXYCODONE HYDROCHLORIDE
  27. LITICAN [ALIZAPRIDE HYDROCHLORIDE] [Concomitant]
  28. MOXIFLOXACINE [Concomitant]
     Active Substance: MOXIFLOXACIN
  29. INUVAIR [Concomitant]
     Active Substance: BECLOMETHASONE DIPROPIONATE\FORMOTEROL FUMARATE
  30. SOLU?MEDROL [Concomitant]
     Active Substance: METHYLPREDNISOLONE SODIUM SUCCINATE

REACTIONS (1)
  - Pneumonia [Recovered/Resolved]

NARRATIVE: CASE EVENT DATE: 20191118
